FAERS Safety Report 6162034-9 (Version None)
Quarter: 2009Q2

REPORT INFORMATION
  Report Type: 
  Country: None (occurrence: None)
  Receive Date: 20090417
  Receipt Date: 20090417
  Transmission Date: 20091009
  Serious: Yes (Other)
  Sender: FDA-Public Use
  Company Number: None

PATIENT
  Sex: Female
  Weight: 58.514 kg

DRUGS (1)
  1. ETHEX PRENATAL PLUS EXTRA E ETHEX 225 ETHEX [Suspect]
     Indication: PRENATAL CARE
     Dosage: 1 DAILY PO;           20 PILLS
     Route: 048
     Dates: start: 20090223, end: 20090325

REACTIONS (2)
  - CARDIAC FLUTTER [None]
  - DYSPNOEA [None]
